FAERS Safety Report 11034896 (Version 2)
Quarter: 2015Q2

REPORT INFORMATION
  Report Type: Spontaneous
  Country: US (occurrence: US)
  Receive Date: 20150415
  Receipt Date: 20150525
  Transmission Date: 20150821
  Serious: No
  Sender: FDA-Public Use
  Company Number: US-JNJFOC-20130814536

PATIENT
  Sex: Female
  Weight: 95.26 kg

DRUGS (14)
  1. DIAZEPAM. [Concomitant]
     Active Substance: DIAZEPAM
     Indication: ANXIETY
     Route: 048
  2. XGEVA [Concomitant]
     Active Substance: DENOSUMAB
     Indication: BREAST CANCER
     Route: 048
     Dates: start: 2012
  3. SYNTHROID [Concomitant]
     Active Substance: LEVOTHYROXINE SODIUM
     Indication: THYROIDECTOMY
     Route: 048
  4. TRIAMTEREN AND HYDROCHLOROTHIAZID [Concomitant]
     Indication: FLUID RETENTION
     Dosage: 375-25MG MORNING
     Route: 048
  5. XGEVA [Concomitant]
     Active Substance: DENOSUMAB
     Indication: BONE CANCER
     Route: 048
     Dates: start: 2012
  6. SYNTHROID [Concomitant]
     Active Substance: LEVOTHYROXINE SODIUM
     Indication: PARATHYROIDECTOMY
     Route: 048
  7. ACETAMINOPHEN/ISOMETHEPTENE/DICHLORALPHENAZONE [Concomitant]
     Indication: PAIN
     Dosage: 1970^S
     Route: 048
  8. XARELTO [Suspect]
     Active Substance: RIVAROXABAN
     Indication: ATRIAL FIBRILLATION
     Route: 048
     Dates: start: 2013
  9. METOPROLOL [Concomitant]
     Active Substance: METOPROLOL
     Indication: BLOOD PRESSURE
     Route: 048
  10. ASPIRIN. [Concomitant]
     Active Substance: ASPIRIN
     Indication: CARDIAC DISORDER
     Dosage: 81 MG BEFORE BED
     Route: 048
  11. FASLODEX [Concomitant]
     Active Substance: FULVESTRANT
     Indication: BREAST CANCER
     Dosage: MONTHLY
     Route: 048
     Dates: start: 2012
  12. FASLODEX [Concomitant]
     Active Substance: FULVESTRANT
     Indication: BONE CANCER
     Dosage: MONTHLY
     Route: 048
     Dates: start: 2012
  13. XARELTO [Suspect]
     Active Substance: RIVAROXABAN
     Indication: CEREBROVASCULAR ACCIDENT PROPHYLAXIS
     Route: 048
     Dates: start: 2013
  14. CLONIDINE HYDROCHLORIDE. [Concomitant]
     Active Substance: CLONIDINE HYDROCHLORIDE
     Indication: HYPERHIDROSIS
     Dosage: BEFORE BED SINCE 1970^S
     Route: 048

REACTIONS (3)
  - Balance disorder [Unknown]
  - Dizziness [Unknown]
  - Fatigue [Not Recovered/Not Resolved]

NARRATIVE: CASE EVENT DATE: 2013
